FAERS Safety Report 5754748-7 (Version None)
Quarter: 2008Q2

REPORT INFORMATION
  Report Type: 
  Country: None (occurrence: None)
  Receive Date: 20080530
  Receipt Date: 20080521
  Transmission Date: 20081010
  Serious: Yes (Death)
  Sender: FDA-Public Use
  Company Number: FR-PFIZER INC-2008044721

PATIENT
  Sex: Female

DRUGS (2)
  1. ZYVOX [Suspect]
     Indication: POSTOPERATIVE CARE
  2. HEPARIN [Suspect]
     Indication: POSTOPERATIVE CARE

REACTIONS (2)
  - MULTI-ORGAN FAILURE [None]
  - PLATELET COUNT DECREASED [None]
